FAERS Safety Report 8190724-5 (Version None)
Quarter: 2012Q1

REPORT INFORMATION
  Report Type: 
  Country: None (occurrence: None)
  Receive Date: 20120307
  Receipt Date: 20120224
  Transmission Date: 20120608
  Serious: Yes (Hospitalization, Other)
  Sender: FDA-Public Use
  Company Number: FR-ROCHE-748738

PATIENT
  Sex: Male
  Weight: 29.9 kg

DRUGS (11)
  1. DOXORUBICIN HYDROCHLORIDE [Suspect]
     Indication: SARCOMA METASTATIC
     Dosage: DOSAGE FORM: 60MG/M2
     Route: 042
  2. CYCLOPHOSPHAMIDE [Suspect]
     Route: 042
  3. DACTINOMYCIN [Suspect]
     Indication: SARCOMA METASTATIC
     Dosage: DOSAGE FORM: 1.5 MG/M2,  DRUG: ACYINOMYCIN D.
     Route: 042
  4. AVASTIN [Suspect]
     Indication: SARCOMA METASTATIC
     Dosage: LAST DOSE PRIOR TO SAE: 01 DECEMBER 2010. DOSAGE FORM REPORTED AS: 5 MG/KG, TEMPORARILY INTERRUPTED
     Route: 042
  5. VINORELBINE TARTRATE [Suspect]
     Indication: SARCOMA METASTATIC
     Dosage: DOSE:16-25 MG, FORM:16-25 MG/M2, LAST DOSE: 24 NOV 2010
     Route: 042
  6. BACTRIM [Concomitant]
     Dates: start: 20100227, end: 20101214
  7. IFOSFAMIDE [Suspect]
     Indication: SARCOMA METASTATIC
     Dosage: DOSAGE FORM: 6G/M2
     Route: 042
  8. VINCRISTINE [Suspect]
     Indication: SARCOMA METASTATIC
     Dosage: DOSAGE FORM: 1.5MG/M2
     Route: 042
  9. CYCLOPHOSPHAMIDE [Suspect]
     Indication: SARCOMA METASTATIC
     Dosage: DOSE:16-25 MG, FORM:16-25 MG/M2, LAST DOSE: 14 DEC 2010
     Route: 042
     Dates: start: 20101018, end: 20101103
  10. CYCLOPHOSPHAMIDE [Suspect]
     Route: 042
     Dates: start: 20101116, end: 20101130
  11. CYCLOPHOSPHAMIDE [Suspect]
     Route: 042
     Dates: start: 20101201, end: 20101228

REACTIONS (3)
  - EPISTAXIS [None]
  - MICROANGIOPATHY [None]
  - POST PROCEDURAL HAEMATOMA [None]
